FAERS Safety Report 5796999-1 (Version None)
Quarter: 2008Q3

REPORT INFORMATION
  Report Type: 
  Country: None (occurrence: None)
  Receive Date: 20080701
  Receipt Date: 20080620
  Transmission Date: 20090109
  Serious: Yes (Death)
  Sender: FDA-Public Use
  Company Number: IN-BAXTER-2008BH006700

PATIENT
  Age: 51 Year
  Sex: Female

DRUGS (13)
  1. DIANEAL [Suspect]
     Indication: PERITONEAL DIALYSIS
     Route: 033
     Dates: start: 20080601, end: 20080614
  2. DIANEAL [Suspect]
     Route: 033
     Dates: start: 20080601, end: 20080614
  3. MINIPRESS [Concomitant]
     Indication: DRUG USE FOR UNKNOWN INDICATION
     Dosage: DOSE UNIT:UNKNOWN
     Route: 065
     Dates: end: 20080614
  4. NICARDIA RTD [Concomitant]
     Indication: DRUG USE FOR UNKNOWN INDICATION
     Dosage: DOSE UNIT:UNKNOWN
     Route: 065
     Dates: end: 20080614
  5. HUMAN INSULIN [Concomitant]
     Indication: DRUG USE FOR UNKNOWN INDICATION
     Route: 065
     Dates: end: 20080614
  6. EPREX [Concomitant]
     Indication: DRUG USE FOR UNKNOWN INDICATION
     Dosage: DOSE UNIT:UNKNOWN
     Route: 065
     Dates: end: 20080614
  7. CALCIUM [Concomitant]
     Indication: DRUG USE FOR UNKNOWN INDICATION
     Dosage: DOSE UNIT:UNKNOWN
     Route: 065
     Dates: end: 20080614
  8. ALPHA D3 [Concomitant]
     Indication: DRUG USE FOR UNKNOWN INDICATION
     Dosage: DOSE UNIT:UNKNOWN
     Route: 065
     Dates: end: 20080614
  9. GLYNASE [Concomitant]
     Indication: DRUG USE FOR UNKNOWN INDICATION
     Dosage: DOSE UNIT:UNKNOWN
     Route: 065
     Dates: end: 20080614
  10. FOLIC ACID [Concomitant]
     Indication: DRUG USE FOR UNKNOWN INDICATION
     Dosage: DOSE UNIT:UNKNOWN
     Route: 065
     Dates: end: 20080614
  11. LOSACAR [Concomitant]
     Indication: DRUG USE FOR UNKNOWN INDICATION
     Route: 065
     Dates: end: 20080614
  12. ALDOMET [Concomitant]
     Indication: DRUG USE FOR UNKNOWN INDICATION
     Dosage: DOSE UNIT:UNKNOWN
     Route: 065
     Dates: end: 20080614
  13. HUMAN INSULIN [Concomitant]
     Route: 065

REACTIONS (1)
  - CEREBROVASCULAR ACCIDENT [None]
